FAERS Safety Report 8478602-5 (Version None)
Quarter: 2012Q2

REPORT INFORMATION
  Report Type: 
  Country: None (occurrence: None)
  Receive Date: 20120629
  Receipt Date: 20120628
  Transmission Date: 20120825
  Serious: Yes (Death, Other)
  Sender: FDA-Public Use
  Company Number: PHHY2011SE63061

PATIENT
  Age: 32 Year
  Sex: Male

DRUGS (4)
  1. HERBAL BLEND KRYPTON [Suspect]
  2. CITALOPRAM HYDROBROMIDE [Suspect]
  3. TETRAHYDROCANNABINOL [Suspect]
  4. ALPRAZOLAM [Suspect]

REACTIONS (3)
  - TOXICITY TO VARIOUS AGENTS [None]
  - PULMONARY OEDEMA [None]
  - BRAIN OEDEMA [None]
